FAERS Safety Report 7313200-8 (Version None)
Quarter: 2011Q1

REPORT INFORMATION
  Report Type: 
  Country: None (occurrence: None)
  Receive Date: 20110225
  Receipt Date: 20110216
  Transmission Date: 20110831
  Serious: Yes (Hospitalization, Disabling, Other)
  Sender: FDA-Public Use
  Company Number: JP-JNJFOC-20110202149

PATIENT
  Sex: Female
  Weight: 58 kg

DRUGS (20)
  1. DOXORUBICIN HCL [Suspect]
     Dosage: CYCLE 1
     Route: 042
  2. PRIMPERAN TAB [Concomitant]
     Indication: PROPHYLAXIS
     Route: 048
  3. ALLEGRA [Concomitant]
     Indication: SEASONAL ALLERGY
     Route: 048
  4. ALLEGRA [Concomitant]
     Indication: URTICARIA
     Route: 048
  5. CYANOCOBALAMIN [Concomitant]
     Indication: SEASONAL ALLERGY
     Route: 031
  6. PURSENNID [Concomitant]
     Indication: CONSTIPATION
     Route: 048
  7. LOXONIN [Concomitant]
     Indication: INGUINAL HERNIA
     Route: 048
  8. ALLELOCK [Concomitant]
     Route: 048
  9. GASMOTIN [Concomitant]
     Indication: CONSTIPATION
     Route: 048
  10. DOXORUBICIN HCL [Suspect]
     Dosage: CYCLE 5
     Route: 042
  11. DOXORUBICIN HCL [Suspect]
     Dosage: CYCLE 8
     Route: 042
  12. DOXORUBICIN HCL [Suspect]
     Indication: OVARIAN CANCER RECURRENT
     Dosage: CYCLE 3
     Route: 042
  13. DOXORUBICIN HCL [Suspect]
     Dosage: CYCLE 7
     Route: 042
  14. PRIMPERAN TAB [Concomitant]
     Indication: NAUSEA
     Route: 048
  15. MUCOSTA [Concomitant]
     Route: 048
  16. MAGLAX [Concomitant]
     Indication: CONSTIPATION
     Route: 048
  17. MECOBALAMIN [Concomitant]
     Indication: INGUINAL HERNIA REPAIR
     Route: 048
  18. DOXORUBICIN HCL [Suspect]
     Dosage: CYCLE 6
     Route: 042
  19. DOXORUBICIN HCL [Suspect]
     Dosage: CYCLE 2
     Route: 042
  20. DOXORUBICIN HCL [Suspect]
     Dosage: CYCLE 4
     Route: 042

REACTIONS (5)
  - WHITE BLOOD CELL COUNT DECREASED [None]
  - INGUINAL HERNIA [None]
  - PLATELET COUNT DECREASED [None]
  - PYREXIA [None]
  - NEUTROPENIA [None]
